FAERS Safety Report 10078782 (Version 1)
Quarter: 2014Q2

REPORT INFORMATION
  Report Type: Spontaneous
  Country: US (occurrence: None)
  Receive Date: 20140414
  Receipt Date: 20140414
  Transmission Date: 20141212
  Serious: Yes (Hospitalization)
  Sender: FDA-Public Use
  Company Number: None

PATIENT
  Age: 61 Year
  Sex: Male
  Weight: 100 kg

DRUGS (1)
  1. CETUXIMAB [Suspect]

REACTIONS (8)
  - Blood culture positive [None]
  - Staphylococcal bacteraemia [None]
  - Folliculitis [None]
  - Skin lesion [None]
  - Rash follicular [None]
  - Rash pustular [None]
  - Rash [None]
  - Pyrexia [None]
